FAERS Safety Report 4830091-5 (Version None)
Quarter: 2005Q4

REPORT INFORMATION
  Report Type: 
  Country: None (occurrence: None)
  Receive Date: 20051117
  Receipt Date: 20051114
  Transmission Date: 20060501
  Serious: Yes (Other)
  Sender: FDA-Public Use
  Company Number: DK-AVENTIS-200519984GDDC

PATIENT
  Age: 62 Year
  Sex: Male

DRUGS (4)
  1. HYDROCORTISONE [Suspect]
     Route: 061
  2. DICLOXACILLIN [Concomitant]
     Indication: ERYSIPELAS
  3. ERYTHROMYCIN [Concomitant]
     Indication: ERYSIPELAS
  4. OFLOXACIN [Concomitant]
     Indication: ERYSIPELAS

REACTIONS (4)
  - DERMATITIS CONTACT [None]
  - ERYTHEMA [None]
  - PRURITUS [None]
  - RASH PUSTULAR [None]
